FAERS Safety Report 8053289-4 (Version None)
Quarter: 2012Q1

REPORT INFORMATION
  Report Type: 
  Country: None (occurrence: None)
  Receive Date: 20120118
  Receipt Date: 20120109
  Transmission Date: 20120608
  Serious: Yes (Other)
  Sender: FDA-Public Use
  Company Number: US-BAYER-2011-038860

PATIENT
  Age: 26 Year
  Sex: Female
  Weight: 121.54 kg

DRUGS (11)
  1. YAZ [Suspect]
     Indication: CONTRACEPTION
     Dosage: UNK
     Dates: start: 20040101, end: 20091001
  2. YASMIN [Suspect]
     Indication: PREMENSTRUAL SYNDROME
  3. LABETALOL HCL [Concomitant]
     Dosage: UNK
     Dates: start: 20040201, end: 20100101
  4. YAZ [Suspect]
     Indication: PREMENSTRUAL SYNDROME
  5. YASMIN [Suspect]
     Indication: CONTRACEPTION
     Dosage: UNK
     Dates: start: 20040101, end: 20091001
  6. TOPROL-XL [Concomitant]
     Dosage: 100 MG, DAILY
  7. NAPROXEN [Concomitant]
  8. AZITHROMYCIN [Concomitant]
     Dosage: 250 MG, DAILY
  9. HYDROCHLOROTHIAZIDE [Concomitant]
     Dosage: 25 MG, DAILY
  10. METFORMIN HCL [Concomitant]
     Dosage: 500 MG, DAILY
  11. AZITHROMYCIN [Concomitant]
     Dosage: 500 MG, UNK

REACTIONS (3)
  - PAIN [None]
  - CHOLELITHIASIS [None]
  - GALLBLADDER INJURY [None]
